FAERS Safety Report 16538927 (Version 1)
Quarter: 2019Q3

REPORT INFORMATION
  Report Type: Spontaneous
  Country: US (occurrence: US)
  Receive Date: 20190708
  Receipt Date: 20190708
  Transmission Date: 20191004
  Serious: Yes (Hospitalization, Other)
  Sender: FDA-Public Use
  Company Number: US-ACCORD-137337

PATIENT
  Age: 50 Year
  Sex: Male

DRUGS (5)
  1. TACROLIMUS. [Suspect]
     Active Substance: TACROLIMUS
     Indication: IMMUNOSUPPRESSION
  2. SULFAMETHOXAZOLE/TRIMETHOPRIM [Concomitant]
     Indication: ANTIBIOTIC PROPHYLAXIS
  3. PREDNISONE. [Suspect]
     Active Substance: PREDNISONE
     Indication: IMMUNOSUPPRESSION
     Dosage: 7-DAY PREDNISONE TAPER
  4. VALGANCICLOVIR/VALGANCICLOVIR HYDROCHLORIDE [Concomitant]
     Indication: ANTIBIOTIC PROPHYLAXIS
  5. MYCOPHENOLATE MOFETIL/MYCOPHENOLATE SODIUM/MYCOPHENOLIC ACID [Suspect]
     Active Substance: MYCOPHENOLIC ACID
     Indication: IMMUNOSUPPRESSION

REACTIONS (5)
  - Duodenal ulcer [Recovering/Resolving]
  - Necrotising oesophagitis [Recovering/Resolving]
  - Cardio-respiratory arrest [Recovered/Resolved]
  - Respiratory failure [Recovered/Resolved]
  - Cytomegalovirus infection [Recovered/Resolved]
